FAERS Safety Report 17031994 (Version 1)
Quarter: 2019Q4

REPORT INFORMATION
  Report Type: Spontaneous
  Country: US (occurrence: US)
  Receive Date: 20191113
  Receipt Date: 20191113
  Transmission Date: 20200122
  Serious: Yes (Hospitalization)
  Sender: FDA-Public Use
  Company Number: None

PATIENT
  Age: 56 Year
  Sex: Female

DRUGS (7)
  1. FUROSEMIDE. [Concomitant]
     Active Substance: FUROSEMIDE
  2. PEG-3350/KCL [Concomitant]
  3. HUMIRA [Suspect]
     Active Substance: ADALIMUMAB
     Indication: PSORIATIC ARTHROPATHY
     Dosage: ?          OTHER FREQUENCY:EVERY 2 WEEKS;?
     Route: 058
     Dates: start: 20181019
  4. POLY-IRON [Concomitant]
     Active Substance: IRON
  5. SPIRONOLACT [Concomitant]
     Active Substance: SPIRONOLACTONE
  6. LACTULOSE. [Concomitant]
     Active Substance: LACTULOSE
  7. NADOLOL. [Concomitant]
     Active Substance: NADOLOL

REACTIONS (2)
  - Blood iron decreased [None]
  - Therapy cessation [None]
